FAERS Safety Report 12420744 (Version 3)
Quarter: 2016Q4

REPORT INFORMATION
  Report Type: Report from Study
  Country: CO (occurrence: CO)
  Receive Date: 20160531
  Receipt Date: 20161010
  Transmission Date: 20170207
  Serious: Yes (Hospitalization, Other)
  Sender: FDA-Public Use
  Company Number: PHHY2016CO044546

PATIENT
  Age: 55 Year
  Sex: Female
  Weight: 62 kg

DRUGS (3)
  1. VOTRIENT [Suspect]
     Active Substance: PAZOPANIB HYDROCHLORIDE
     Indication: METASTASES TO LUNG
     Dosage: 400 MG, QD
     Route: 048
     Dates: start: 201606, end: 20161003
  2. VOTRIENT [Suspect]
     Active Substance: PAZOPANIB HYDROCHLORIDE
     Indication: SOFT TISSUE SARCOMA
     Dosage: 400 MG, BID
     Route: 048
     Dates: start: 20160131, end: 201605
  3. CLONAZEPAM. [Concomitant]
     Active Substance: CLONAZEPAM
     Indication: PRODUCT USED FOR UNKNOWN INDICATION
     Route: 065

REACTIONS (12)
  - Influenza [Unknown]
  - Malignant neoplasm progression [Unknown]
  - Eye inflammation [Unknown]
  - Liver function test abnormal [Unknown]
  - Depression [Unknown]
  - Cough [Unknown]
  - Skin exfoliation [Unknown]
  - Pulmonary mass [Unknown]
  - Sarcoma metastatic [Unknown]
  - Hypertension [Unknown]
  - Sleep disorder [Unknown]
  - Oral mucosal blistering [Unknown]

NARRATIVE: CASE EVENT DATE: 201606
